FAERS Safety Report 5483170-6 (Version None)
Quarter: 2007Q4

REPORT INFORMATION
  Report Type: 
  Country: None (occurrence: None)
  Receive Date: 20071009
  Receipt Date: 20070926
  Transmission Date: 20080405
  Serious: Yes (Congenital Anomaly)
  Sender: FDA-Public Use
  Company Number: 230126M07CAN

PATIENT
  Sex: Female

DRUGS (2)
  1. REBIF [Suspect]
     Indication: RELAPSING-REMITTING MULTIPLE SCLEROSIS
     Dosage: 44, 3 IN 1 WEEKS, OTHER
     Route: 050
     Dates: start: 20011120
  2. LYRICA [Suspect]
     Dosage: 150 MG, 2 IN 1 DAYS, OTHER
     Route: 050

REACTIONS (5)
  - CAESAREAN SECTION [None]
  - DRUG EXPOSURE DURING PREGNANCY [None]
  - HEART DISEASE CONGENITAL [None]
  - POLYDACTYLY [None]
  - TRANSMISSION OF DRUG VIA SEMEN [None]
